FAERS Safety Report 13095511 (Version 1)
Quarter: 2017Q1

REPORT INFORMATION
  Report Type: Spontaneous
  Country: US (occurrence: US)
  Receive Date: 20170108
  Receipt Date: 20170108
  Transmission Date: 20170428
  Serious: No
  Sender: FDA-Public Use
  Company Number: US-CELGENEUS-USA-2017010701

PATIENT
  Age: 44 Year
  Sex: Female

DRUGS (4)
  1. THALOMID [Suspect]
     Active Substance: THALIDOMIDE
     Indication: HYPERTENSIVE HEART DISEASE
  2. THALOMID [Suspect]
     Active Substance: THALIDOMIDE
     Indication: VITAMIN D DEFICIENCY
  3. THALOMID [Suspect]
     Active Substance: THALIDOMIDE
     Indication: ANTIPHOSPHOLIPID ANTIBODIES
     Dosage: 100 MILLIGRAM
     Route: 048
     Dates: start: 201506
  4. THALOMID [Suspect]
     Active Substance: THALIDOMIDE
     Indication: RHEUMATOID ARTHRITIS

REACTIONS (1)
  - Adverse event [Unknown]

NARRATIVE: CASE EVENT DATE: 20160103
